FAERS Safety Report 12457365 (Version 7)
Quarter: 2018Q2

REPORT INFORMATION
  Report Type: Report from Study
  Country: JP (occurrence: JP)
  Receive Date: 20160610
  Receipt Date: 20180419
  Transmission Date: 20180711
  Serious: Yes (Life-Threatening, Hospitalization, Other)
  Sender: FDA-Public Use
  Company Number: JP-BRISTOL-MYERS SQUIBB COMPANY-BMS-2016-045429

PATIENT
  Age: 59 Year
  Sex: Female
  Weight: 40.5 kg

DRUGS (13)
  1. MAGNESIUM OXIDE. [Concomitant]
     Active Substance: MAGNESIUM OXIDE
     Indication: CONSTIPATION
     Dosage: 1 G, QD
     Route: 048
     Dates: start: 20140904
  2. CELECOX [Concomitant]
     Active Substance: CELECOXIB
     Indication: PAIN
     Dosage: 100 MG, QD
     Route: 048
     Dates: start: 20161111, end: 20161126
  3. IPILIMUMAB [Suspect]
     Active Substance: IPILIMUMAB
     Indication: MALIGNANT MELANOMA
     Dosage: 3 MG/KG, QWK
     Route: 041
     Dates: start: 20160510, end: 20161202
  4. BYAKKOKANINJINTO [Concomitant]
     Indication: THIRST
     Dosage: 2 DF, QD
     Route: 048
     Dates: start: 20160322
  5. PANTOSIN [Concomitant]
     Active Substance: PANTETHINE
     Indication: ECZEMA
     Dosage: 1 G, QD
     Route: 048
     Dates: start: 20140904
  6. PRIMPERAN [Concomitant]
     Active Substance: METOCLOPRAMIDE HYDROCHLORIDE
     Indication: VOMITING
     Dosage: 15 MG, QD
     Route: 048
     Dates: start: 20151125
  7. OXYCODONE                          /00045603/ [Concomitant]
     Active Substance: OXYCODONE
     Indication: PROPHYLAXIS
     Dosage: 10 MG, QD
     Route: 048
     Dates: start: 20161202, end: 20161216
  8. MAGMITT [Concomitant]
     Active Substance: MAGNESIUM OXIDE
     Indication: DYSPEPSIA
     Dosage: 990 MG, TID
     Route: 048
     Dates: start: 20161202, end: 20161216
  9. POLAPREZINC [Concomitant]
     Active Substance: POLAPREZINC
     Indication: MALIGNANT MELANOMA
     Dosage: 150 MG, BID
     Route: 048
     Dates: start: 20161202, end: 20161216
  10. DICLOFENAC SODIUM. [Concomitant]
     Active Substance: DICLOFENAC SODIUM
     Indication: PAIN
     Dosage: 75 MG, TID
     Route: 048
     Dates: start: 20161202, end: 20161216
  11. METOCLOPRAMIDE. [Concomitant]
     Active Substance: METOCLOPRAMIDE
     Indication: PROPHYLAXIS
     Dosage: 5 MG, QD
     Route: 048
     Dates: start: 20161202, end: 20161206
  12. OXINORM                            /00045603/ [Concomitant]
     Active Substance: OXYCODONE HYDROCHLORIDE
     Indication: PROPHYLAXIS
     Dosage: 2.5 MG, PRN
     Route: 048
     Dates: start: 20161202, end: 20170102
  13. CARBOCISTEINE [Concomitant]
     Active Substance: CARBOCYSTEINE
     Indication: CHRONIC SINUSITIS
     Dosage: 1500 MG, QD
     Route: 048
     Dates: start: 20150114

REACTIONS (10)
  - Tumour haemorrhage [Recovered/Resolved]
  - Abdominal rigidity [Not Recovered/Not Resolved]
  - Enteritis [Recovered/Resolved]
  - Malaise [Not Recovered/Not Resolved]
  - Vomiting [Recovered/Resolved]
  - Packed red blood cell transfusion [Unknown]
  - Abdominal pain upper [Recovering/Resolving]
  - Erythema nodosum [Not Recovered/Not Resolved]
  - Therapeutic embolisation [Unknown]
  - Anaemia [Recovered/Resolved]

NARRATIVE: CASE EVENT DATE: 20160522
